FAERS Safety Report 19666143 (Version 1)
Quarter: 2021Q3

REPORT INFORMATION
  Report Type: Spontaneous
  Country: US (occurrence: US)
  Receive Date: 20210805
  Receipt Date: 20210805
  Transmission Date: 20211014
  Serious: Yes (Death)
  Sender: FDA-Public Use
  Company Number: None

PATIENT
  Age: 75 Year
  Sex: Male

DRUGS (19)
  1. SENNA [Concomitant]
     Active Substance: SENNA LEAF\SENNOSIDES\SENNOSIDES A AND B
  2. KLOR?CON [Concomitant]
     Active Substance: POTASSIUM CHLORIDE
  3. AFINITOR [Suspect]
     Active Substance: EVEROLIMUS
     Indication: RENAL CELL CARCINOMA
     Route: 048
     Dates: start: 20210716
  4. METOPROLOL TARTARATE [Concomitant]
     Active Substance: METOPROLOL TARTRATE
  5. POLYETHYLENE GLYCOL POWDER [Concomitant]
  6. SERTRALINE [Concomitant]
     Active Substance: SERTRALINE HYDROCHLORIDE
  7. FUROSEMIDE. [Concomitant]
     Active Substance: FUROSEMIDE
  8. DICLOFENAC [Concomitant]
     Active Substance: DICLOFENAC
  9. ASPIRIN. [Concomitant]
     Active Substance: ASPIRIN
  10. GLYCERIN SUPPOSITORIES [Concomitant]
  11. ELIQUIS [Concomitant]
     Active Substance: APIXABAN
  12. ONDANSETRON [Concomitant]
     Active Substance: ONDANSETRON
  13. SYNTHROID [Concomitant]
     Active Substance: LEVOTHYROXINE SODIUM
  14. COLCHICINE. [Concomitant]
     Active Substance: COLCHICINE
  15. MORPHINE SULFATE. [Concomitant]
     Active Substance: MORPHINE SULFATE
  16. EMLA [Concomitant]
     Active Substance: LIDOCAINE\PRILOCAINE
  17. ATORVASTATIN [Concomitant]
     Active Substance: ATORVASTATIN
  18. PREDNISONE. [Concomitant]
     Active Substance: PREDNISONE
  19. DEXAMETHASONE. [Concomitant]
     Active Substance: DEXAMETHASONE

REACTIONS (1)
  - Fall [None]

NARRATIVE: CASE EVENT DATE: 20210801
